FAERS Safety Report 9660541 (Version 3)
Quarter: 2013Q4

REPORT INFORMATION
  Report Type: Report from Study
  Country: DE (occurrence: DE)
  Receive Date: 20131031
  Receipt Date: 20131101
  Transmission Date: 20140711
  Serious: Yes (Death, Hospitalization, Other)
  Sender: FDA-Public Use
  Company Number: DE-ROCHE-1285101

PATIENT
  Age: 65 Year
  Sex: Female
  Weight: 68 kg

DRUGS (4)
  1. METHOXY POLYETHYLENE GLYCOL-EPOETIN BETA [Suspect]
     Indication: NEPHROGENIC ANAEMIA
     Route: 042
     Dates: start: 20110829
  2. PHENPROCOUMON [Concomitant]
     Route: 065
     Dates: start: 20060307
  3. FERINJECT [Concomitant]
     Route: 065
     Dates: start: 20090404
  4. RAMIPRIL [Concomitant]
     Indication: HYPERTENSION
     Route: 048
     Dates: start: 20060907

REACTIONS (5)
  - Multi-organ failure [Fatal]
  - Sepsis [Fatal]
  - Pain [Unknown]
  - Metastases to bone [Unknown]
  - Confusional state [Unknown]
